FAERS Safety Report 25660845 (Version 1)
Quarter: 2025Q3

REPORT INFORMATION
  Report Type: Spontaneous
  Country: US (occurrence: None)
  Receive Date: 20250807
  Receipt Date: 20250807
  Transmission Date: 20251021
  Serious: Yes (unspecified)
  Sender: FDA-CTU
  Company Number: None

PATIENT
  Age: 70 Year
  Sex: Female
  Weight: 54.43 kg

DRUGS (10)
  1. OXALIPLATIN [Suspect]
     Active Substance: OXALIPLATIN
     Indication: Bile duct cancer
     Dosage: OTHER QUANTITY : 200/40 MG/ML;?FREQUENCY : EVERY THREE WEEKS;?
     Route: 042
     Dates: start: 20250422, end: 20250422
  2. CHOLESTYRAMINE [Concomitant]
     Active Substance: CHOLESTYRAMINE
  3. BUPRENORPHINE [Concomitant]
     Active Substance: BUPRENORPHINE
  4. FAMOTIDINE [Concomitant]
     Active Substance: FAMOTIDINE
  5. METHIMAZOLE [Concomitant]
     Active Substance: METHIMAZOLE
  6. NIFEDIPINE [Concomitant]
     Active Substance: NIFEDIPINE
  7. LOSARTAN [Concomitant]
     Active Substance: LOSARTAN
  8. OMEPRAZOLE [Concomitant]
     Active Substance: OMEPRAZOLE
  9. METOPROLOL [Concomitant]
     Active Substance: METOPROLOL
  10. Artificial Tears [Concomitant]

REACTIONS (2)
  - Dyspnoea [None]
  - Dysphonia [None]

NARRATIVE: CASE EVENT DATE: 20250422
